FAERS Safety Report 4425376-0 (Version None)
Quarter: 2004Q3

REPORT INFORMATION
  Report Type: 
  Country: None (occurrence: None)
  Receive Date: 20040810
  Receipt Date: 20040608
  Transmission Date: 20050211
  Serious: Yes (Other)
  Sender: FDA-Public Use
  Company Number: 2004BL002111

PATIENT
  Age: 77 Year
  Sex: Female

DRUGS (2)
  1. DIPIVEFRIN HYDROCHLORIDE [Suspect]
     Indication: GLAUCOMA
     Dosage: 1 GTT;TWICE A DAY;OPHTHALMIC
     Route: 047
     Dates: start: 20040319, end: 20040419
  2. ALPHAGAN P [Concomitant]

REACTIONS (6)
  - CARDIAC FAILURE CONGESTIVE [None]
  - CARDIOMEGALY [None]
  - LUNG DISORDER [None]
  - PULMONARY OEDEMA [None]
  - RESPIRATORY TRACT INFECTION [None]
  - WHEEZING [None]
